FAERS Safety Report 6928678-9 (Version None)
Quarter: 2010Q3

REPORT INFORMATION
  Report Type: 
  Country: None (occurrence: None)
  Receive Date: 20100817
  Receipt Date: 20100811
  Transmission Date: 20110219
  Serious: Yes (Death, Hospitalization)
  Sender: FDA-Public Use
  Company Number: A0869003A

PATIENT
  Age: 68 Year
  Sex: Female

DRUGS (1)
  1. AVANDIA [Suspect]
     Indication: DIABETES MELLITUS
     Route: 048
     Dates: start: 20020417

REACTIONS (5)
  - CARDIAC DISORDER [None]
  - CORONARY ARTERIAL STENT INSERTION [None]
  - DEATH [None]
  - HERNIA [None]
  - MUSCULAR WEAKNESS [None]
